FAERS Safety Report 25452821 (Version 2)
Quarter: 2025Q2

REPORT INFORMATION
  Report Type: Spontaneous
  Country: GB (occurrence: GB)
  Receive Date: 20250618
  Receipt Date: 20250626
  Transmission Date: 20250717
  Serious: Yes (Life-Threatening)
  Sender: GALPHARM INTERNATIONAL
  Company Number: None

PATIENT
  Age: 45 Year
  Sex: Male

DRUGS (2)
  1. ACETAMINOPHEN [Suspect]
     Active Substance: ACETAMINOPHEN
     Indication: Product used for unknown indication
     Dosage: 1 G FOUR TIMES A DAY ORAL
     Route: 048
     Dates: start: 20250609, end: 20250609
  2. STREPTOKINASE [Concomitant]
     Active Substance: STREPTOKINASE
     Indication: Product used for unknown indication
     Route: 065
     Dates: start: 20250227, end: 20250523

REACTIONS (1)
  - Abdominal pain [Recovered/Resolved]
